FAERS Safety Report 8353538-9 (Version None)
Quarter: 2012Q2

REPORT INFORMATION
  Report Type: 
  Country: None (occurrence: None)
  Receive Date: 20120511
  Receipt Date: 20110517
  Transmission Date: 20120825
  Serious: No
  Sender: FDA-Public Use
  Company Number: US-GLAXOSMITHKLINE-A0929039A

PATIENT
  Age: 63 Year
  Sex: Female

DRUGS (3)
  1. HERCEPTIN [Concomitant]
  2. BEVACIZUMAB [Concomitant]
     Route: 042
  3. TYKERB [Suspect]
     Indication: BREAST CANCER
     Dosage: 1250MG PER DAY
     Route: 065

REACTIONS (7)
  - DIARRHOEA [None]
  - DYSPEPSIA [None]
  - DECREASED APPETITE [None]
  - NAUSEA [None]
  - WEIGHT DECREASED [None]
  - VOMITING [None]
  - DRUG INEFFECTIVE [None]
